FAERS Safety Report 9773669 (Version 1)
Quarter: 2013Q4

REPORT INFORMATION
  Report Type: Spontaneous
  Country: US (occurrence: US)
  Receive Date: 20131219
  Receipt Date: 20131219
  Transmission Date: 20140711
  Serious: Yes (Death, Other)
  Sender: FDA-Public Use
  Company Number: US-GILEAD-2013-0090350

PATIENT
  Age: 73 Year
  Sex: Male

DRUGS (13)
  1. LETAIRIS [Suspect]
     Indication: PULMONARY ARTERIAL HYPERTENSION
     Dosage: 5 MG, QD
     Route: 048
     Dates: start: 20091222, end: 20131126
  2. SUTENT [Concomitant]
  3. OXYCONTIN [Concomitant]
  4. VIGAMOX [Concomitant]
  5. DUREZOL [Concomitant]
  6. SIMVASTATIN [Concomitant]
  7. FINASTERIDE [Concomitant]
  8. WARFARIN [Concomitant]
  9. DIGOXIN [Concomitant]
  10. AMIODARONE [Concomitant]
  11. METOPROLOL [Concomitant]
  12. ASPIRIN [Concomitant]
  13. MVI                                /07504101/ [Concomitant]

REACTIONS (1)
  - Death [Fatal]
